FAERS Safety Report 16781058 (Version 1)
Quarter: 2019Q3

REPORT INFORMATION
  Report Type: Spontaneous
  Country: US (occurrence: US)
  Receive Date: 20190906
  Receipt Date: 20190906
  Transmission Date: 20191005
  Serious: Yes (Hospitalization, Other)
  Sender: FDA-Public Use
  Company Number: US-FRESENIUS KABI-FK201909796

PATIENT
  Age: 58 Year
  Sex: Male

DRUGS (5)
  1. FLUOROURACIL (MANUFACTURER UNKNOWN) [Suspect]
     Active Substance: FLUOROURACIL
     Indication: ADENOCARCINOMA OF COLON
     Route: 065
  2. ONDANSETRON [Concomitant]
     Active Substance: ONDANSETRON
     Indication: PRODUCT USED FOR UNKNOWN INDICATION
  3. DEXAMETHASONE. [Concomitant]
     Active Substance: DEXAMETHASONE
     Indication: PRODUCT USED FOR UNKNOWN INDICATION
     Route: 042
  4. CALCIUM FOLINATE [Concomitant]
     Active Substance: LEUCOVORIN CALCIUM
     Indication: PRODUCT USED FOR UNKNOWN INDICATION
  5. FLUOROURACIL (MANUFACTURER UNKNOWN) [Suspect]
     Active Substance: FLUOROURACIL
     Dosage: OVER ONE HOUR VIA AN INFUSION PUMP
     Route: 065

REACTIONS (9)
  - Nystagmus [Recovered/Resolved]
  - Device programming error [Recovered/Resolved]
  - Feeling abnormal [Recovered/Resolved]
  - Clostridium difficile infection [Recovered/Resolved]
  - Thrombocytopenia [Recovered/Resolved]
  - Overdose [Recovered/Resolved]
  - Incorrect product administration duration [Recovered/Resolved]
  - Leukopenia [Recovered/Resolved]
  - Hypoaesthesia [Recovered/Resolved]
